FAERS Safety Report 5601029-8 (Version None)
Quarter: 2008Q1

REPORT INFORMATION
  Report Type: 
  Country: None (occurrence: None)
  Receive Date: 20080122
  Receipt Date: 20080122
  Transmission Date: 20080703
  Serious: Yes (Other)
  Sender: FDA-Public Use
  Company Number: None

PATIENT
  Age: 51 Year
  Sex: Female
  Weight: 51.2565 kg

DRUGS (2)
  1. BONIVA [Suspect]
     Indication: OSTEOPENIA
     Dosage: ONCE MONTHLY
     Dates: start: 20071001, end: 20071101
  2. ACTONEL [Suspect]
     Indication: OSTEOPENIA
     Dosage: ONCE WEEKLY
     Dates: start: 20071101, end: 20080110

REACTIONS (3)
  - BACK PAIN [None]
  - NECK PAIN [None]
  - PAIN [None]
